FAERS Safety Report 8974111 (Version 1)
Quarter: 2012Q4

REPORT INFORMATION
  Report Type: Spontaneous
  Country: IE (occurrence: None)
  Receive Date: 20121212
  Receipt Date: 20121212
  Transmission Date: 20130627
  Serious: Yes (Hospitalization)
  Sender: FDA-Public Use
  Company Number: 142751

PATIENT
  Age: 69 Year
  Sex: Female

DRUGS (2)
  1. CARBOPLATIN [Suspect]
     Indication: SMALL CELL LUNG CANCER
     Dosage: Inj. 5 mL/ vial 10mg/ mL - Bedford Labs, Inc.
  2. ETOPOSIDE [Suspect]

REACTIONS (1)
  - Posterior reversible encephalopathy syndrome [None]
